FAERS Safety Report 6737906-4 (Version None)
Quarter: 2010Q2

REPORT INFORMATION
  Report Type: 
  Country: None (occurrence: None)
  Receive Date: 20100521
  Receipt Date: 20100521
  Transmission Date: 20101027
  Serious: Yes (Hospitalization)
  Sender: FDA-Public Use
  Company Number: None

PATIENT
  Age: 66 Year
  Sex: Male
  Weight: 89.5 kg

DRUGS (2)
  1. CLARITHROMYCIN [Suspect]
     Indication: MYCOBACTERIAL INFECTION
     Dosage: BID PO
     Route: 048
     Dates: start: 20100504, end: 20100513
  2. CLARITHROMYCIN [Suspect]
     Indication: SKIN INFECTION
     Dosage: BID PO
     Route: 048
     Dates: start: 20100504, end: 20100513

REACTIONS (1)
  - THROMBOCYTOPENIA [None]
